FAERS Safety Report 9859633 (Version 1)
Quarter: 2014Q1

REPORT INFORMATION
  Report Type: Spontaneous
  Country: US (occurrence: US)
  Receive Date: 20140131
  Receipt Date: 20140131
  Transmission Date: 20141002
  Serious: Yes (Hospitalization)
  Sender: FDA-Public Use
  Company Number: US-PFIZER INC-2014027741

PATIENT
  Age: 12 Year
  Sex: Male
  Weight: 30.39 kg

DRUGS (1)
  1. GENOTROPIN MQ [Suspect]
     Indication: GROWTH HORMONE DEFICIENCY
     Dosage: UNK
     Dates: end: 201306

REACTIONS (1)
  - Bone marrow disorder [Unknown]
